FAERS Safety Report 20331379 (Version 4)
Quarter: 2022Q1

REPORT INFORMATION
  Report Type: Report from Study
  Country: MX (occurrence: MX)
  Receive Date: 20220113
  Receipt Date: 20220321
  Transmission Date: 20220424
  Serious: Yes (Other)
  Sender: FDA-Public Use
  Company Number: MX-NOVARTISPH-NVSC2021MX283652

PATIENT
  Sex: Female
  Weight: 76 kg

DRUGS (2)
  1. TASIGNA [Suspect]
     Active Substance: NILOTINIB
     Indication: Chronic myeloid leukaemia
     Dosage: UNK
     Route: 048
     Dates: start: 201802
  2. IMATINIB [Suspect]
     Active Substance: IMATINIB
     Indication: Chronic myeloid leukaemia
     Dosage: UNK
     Route: 065

REACTIONS (13)
  - Uterine haemorrhage [Recovered/Resolved]
  - Epilepsy [Unknown]
  - Major depression [Unknown]
  - Headache [Unknown]
  - Dizziness [Unknown]
  - Hormone level abnormal [Unknown]
  - Crying [Unknown]
  - Gait disturbance [Unknown]
  - Increased appetite [Unknown]
  - Liver disorder [Unknown]
  - Constipation [Unknown]
  - Weight increased [Unknown]
  - Anxiety [Unknown]
